FAERS Safety Report 8849070 (Version 1)
Quarter: 2012Q4

REPORT INFORMATION
  Report Type: Spontaneous
  Country: US (occurrence: None)
  Receive Date: 20121017
  Receipt Date: 20121017
  Transmission Date: 20130627
  Serious: No
  Sender: FDA-Public Use
  Company Number: None

PATIENT
  Age: 56 Year
  Sex: Female
  Weight: 63.5 kg

DRUGS (1)
  1. LOSARTAN [Suspect]

REACTIONS (5)
  - Headache [None]
  - Abdominal discomfort [None]
  - Syncope [None]
  - Anaemia [None]
  - Product substitution issue [None]
